FAERS Safety Report 24935362 (Version 1)
Quarter: 2025Q1

REPORT INFORMATION
  Report Type: Spontaneous
  Country: CN (occurrence: CN)
  Receive Date: 20250206
  Receipt Date: 20250206
  Transmission Date: 20250409
  Serious: Yes (Hospitalization)
  Sender: MACLEODS
  Company Number: CN-MACLEODS PHARMA-MAC2025051452

PATIENT

DRUGS (4)
  1. LEVOFLOXACIN [Suspect]
     Active Substance: LEVOFLOXACIN
     Indication: Product used for unknown indication
     Route: 065
  2. CEFTRIAXONE [Suspect]
     Active Substance: CEFTRIAXONE
     Indication: Pneumonia
     Dosage: 2 G QD
     Route: 042
  3. DOXOFYLLINE [Concomitant]
     Active Substance: DOXOFYLLINE
     Route: 042
  4. METHYLPREDNISOLONE [Concomitant]
     Active Substance: METHYLPREDNISOLONE
     Indication: Drug hypersensitivity
     Dosage: 40 MG QD
     Route: 042

REACTIONS (3)
  - Respiratory tract infection [Recovered/Resolved]
  - Haemolytic anaemia [Recovered/Resolved]
  - Drug hypersensitivity [Unknown]
